FAERS Safety Report 6615926-8 (Version None)
Quarter: 2010Q1

REPORT INFORMATION
  Report Type: 
  Country: None (occurrence: None)
  Receive Date: 20100305
  Receipt Date: 20100225
  Transmission Date: 20100710
  Serious: Yes (Death)
  Sender: FDA-Public Use
  Company Number: GXKR2010US02315

PATIENT
  Age: 69 Year
  Sex: Male

DRUGS (8)
  1. CISPLATIN [Suspect]
     Indication: NON-SMALL CELL LUNG CANCER
     Dosage: 300 MG/M2 (CUMULATIVE DOSE) FOUR 21 DAY CYCLES
     Route: 065
  2. VINORELBINE [Suspect]
     Indication: NON-SMALL CELL LUNG CANCER
     Dosage: 200 MG/M2 (CUMULATIVE DOSE)  FOUR 21 DAY CYCLES
     Route: 065
  3. METOPROLOL [Concomitant]
     Route: 065
  4. FOLIC ACID [Concomitant]
     Route: 065
  5. ACETYLSALICYLIC ACID [Concomitant]
     Route: 065
  6. ESCITALOPRAM [Concomitant]
     Route: 065
  7. TAMSULOSIN HCL [Concomitant]
  8. TIOTROPIUM [Concomitant]

REACTIONS (4)
  - ACUTE MYELOID LEUKAEMIA [None]
  - FATIGUE [None]
  - PSEUDOMONAS INFECTION [None]
  - SEPTIC SHOCK [None]
